FAERS Safety Report 4415301-0 (Version None)
Quarter: 2004Q3

REPORT INFORMATION
  Report Type: 
  Country: None (occurrence: None)
  Receive Date: 20040730
  Receipt Date: 20040719
  Transmission Date: 20050211
  Serious: Yes (Other)
  Sender: FDA-Public Use
  Company Number: 207927

PATIENT
  Age: 52 Year
  Sex: Female

DRUGS (8)
  1. MABTHERA (RITUXIMAB) CONC FOR SOLUTION FOR INFUSION [Suspect]
     Indication: NON-HODGKIN'S LYMPHOMA
     Dosage: 375 MG/M2, 1/WEEK, INTRAVENOUS
     Route: 042
  2. DOXORUBICIN HYDROCHLORIDE [Concomitant]
  3. CYCLOPHOSPHAMIDE [Concomitant]
  4. VINDESINE (VINDESINE) [Concomitant]
  5. BLEOMYCIN [Concomitant]
  6. ETOPOSIDE [Concomitant]
  7. TOTAL BODY IRRADIATION (RADIATION THERAPY) [Concomitant]
  8. STEM CELL TRANSPLANT (STEM CELLS) [Concomitant]

REACTIONS (4)
  - BACTERIAL INFECTION [None]
  - CELLULITIS [None]
  - NEUTROPENIA [None]
  - STEM CELL TRANSPLANT [None]
